FAERS Safety Report 20552360 (Version 1)
Quarter: 2022Q1

REPORT INFORMATION
  Report Type: Spontaneous
  Country: JP (occurrence: JP)
  Receive Date: 20220304
  Receipt Date: 20220304
  Transmission Date: 20220423
  Serious: Yes (Other)
  Sender: FDA-Public Use
  Company Number: JP-MYLANLABS-2022M1016203

PATIENT
  Age: 19 Year
  Sex: Female

DRUGS (8)
  1. PREDNISOLONE [Suspect]
     Active Substance: PREDNISOLONE
     Indication: Chronic active Epstein-Barr virus infection
     Dosage: ESCAP AND THP-COP REGIMEN
     Route: 065
  2. CYCLOSPORINE [Suspect]
     Active Substance: CYCLOSPORINE
     Indication: Chronic active Epstein-Barr virus infection
     Route: 065
  3. ETOPOSIDE [Suspect]
     Active Substance: ETOPOSIDE
     Indication: Chronic active Epstein-Barr virus infection
     Dosage: ESCAP REGIMEN
     Route: 065
  4. CYTARABINE [Suspect]
     Active Substance: CYTARABINE
     Indication: Chronic active Epstein-Barr virus infection
     Dosage: ESCAP REGIMEN
     Route: 065
  5. ASPARAGINASE [Suspect]
     Active Substance: ASPARAGINASE
     Indication: Chronic active Epstein-Barr virus infection
     Dosage: ESCAP REGIMEN
     Route: 065
  6. CYCLOPHOSPHAMIDE [Suspect]
     Active Substance: CYCLOPHOSPHAMIDE
     Indication: Chronic active Epstein-Barr virus infection
     Dosage: THP-COP REGIMEN
     Route: 065
  7. VINCRISTINE [Suspect]
     Active Substance: VINCRISTINE
     Indication: Chronic active Epstein-Barr virus infection
     Dosage: THP-COP REGIMEN
     Route: 065
  8. PIRARUBICIN [Suspect]
     Active Substance: PIRARUBICIN
     Indication: Chronic active Epstein-Barr virus infection
     Dosage: THP-COP REGIMEN
     Route: 065

REACTIONS (1)
  - Drug ineffective [Unknown]
